FAERS Safety Report 22644166 (Version 1)
Quarter: 2023Q2

REPORT INFORMATION
  Report Type: Spontaneous
  Country: CN (occurrence: CN)
  Receive Date: 20230627
  Receipt Date: 20230627
  Transmission Date: 20230721
  Serious: Yes (Death)
  Sender: FDA-Public Use
  Company Number: CN-AMGEN-CHNSP2023109217

PATIENT

DRUGS (2)
  1. XGEVA [Suspect]
     Active Substance: DENOSUMAB
     Indication: Metastases to lung
     Dosage: 120 MILLIGRAM
     Route: 065
     Dates: start: 201905
  2. APATINIB [Concomitant]
     Active Substance: APATINIB
     Dosage: UNK
     Route: 065
     Dates: start: 201905

REACTIONS (2)
  - Haematological infection [Fatal]
  - Pneumonia [Fatal]

NARRATIVE: CASE EVENT DATE: 20200101
